FAERS Safety Report 19514243 (Version 2)
Quarter: 2021Q3

REPORT INFORMATION
  Report Type: Spontaneous
  Country: US (occurrence: US)
  Receive Date: 20210709
  Receipt Date: 20210813
  Transmission Date: 20211014
  Serious: Yes (Other)
  Sender: FDA-Public Use
  Company Number: US-TEVA-2021-US-1929224

PATIENT
  Age: 32 Year
  Sex: Female
  Weight: 61.23 kg

DRUGS (4)
  1. AJOVY [Suspect]
     Active Substance: FREMANEZUMAB-VFRM
     Route: 065
     Dates: start: 202105
  2. AJOVY [Suspect]
     Active Substance: FREMANEZUMAB-VFRM
     Route: 065
     Dates: start: 20210713
  3. AJOVY [Suspect]
     Active Substance: FREMANEZUMAB-VFRM
     Indication: MIGRAINE
     Route: 065
     Dates: start: 20210414
  4. AJOVY [Suspect]
     Active Substance: FREMANEZUMAB-VFRM
     Route: 065
     Dates: start: 202104

REACTIONS (11)
  - Incorrect dose administered [Unknown]
  - Loss of consciousness [Recovered/Resolved]
  - Dehydration [Unknown]
  - Dyspnoea [Recovered/Resolved]
  - Injection site swelling [Unknown]
  - Flushing [Recovered/Resolved]
  - Fear of injection [Unknown]
  - Injection site pain [Unknown]
  - Incorrect drug administration rate [Unknown]
  - Ventricular extrasystoles [Unknown]
  - Post procedural complication [Recovered/Resolved]

NARRATIVE: CASE EVENT DATE: 202106
